FAERS Safety Report 5736235-5 (Version None)
Quarter: 2008Q2

REPORT INFORMATION
  Report Type: 
  Country: None (occurrence: None)
  Receive Date: 20080508
  Receipt Date: 20080424
  Transmission Date: 20081010
  Serious: Yes (Life-Threatening, Hospitalization)
  Sender: FDA-Public Use
  Company Number: E2020-02583-SPO-JP

PATIENT
  Age: 85 Year
  Sex: Female
  Weight: 38 kg

DRUGS (3)
  1. ARICEPT [Suspect]
     Indication: DEMENTIA ALZHEIMER'S TYPE
     Dosage: 3 MG, 1 IN 1 D, ORAL; 5 MG, 1 IN 1D, ORAL; 3 MG, 1 IN 1 D, ORAL
     Route: 048
     Dates: start: 20071227, end: 20080102
  2. ARICEPT [Suspect]
     Indication: DEMENTIA ALZHEIMER'S TYPE
     Dosage: 3 MG, 1 IN 1 D, ORAL; 5 MG, 1 IN 1D, ORAL; 3 MG, 1 IN 1 D, ORAL
     Route: 048
     Dates: start: 20080103, end: 20080301
  3. ARICEPT [Suspect]
     Indication: DEMENTIA ALZHEIMER'S TYPE
     Dosage: 3 MG, 1 IN 1 D, ORAL; 5 MG, 1 IN 1D, ORAL; 3 MG, 1 IN 1 D, ORAL
     Route: 048
     Dates: start: 20080301

REACTIONS (7)
  - ACTIVITIES OF DAILY LIVING IMPAIRED [None]
  - AGITATION [None]
  - BRADYCARDIA [None]
  - HYPOTENSION [None]
  - HYPOTHERMIA [None]
  - PNEUMONIA [None]
  - UNRESPONSIVE TO STIMULI [None]
